FAERS Safety Report 5025750-8 (Version None)
Quarter: 2006Q2

REPORT INFORMATION
  Report Type: 
  Country: None (occurrence: None)
  Receive Date: 20060614
  Receipt Date: 20050729
  Transmission Date: 20061013
  Serious: No
  Sender: FDA-Public Use
  Company Number: US-BRISTOL-MYERS SQUIBB COMPANY-13057153

PATIENT
  Age: 60 Year
  Sex: Female
  Weight: 61 kg

DRUGS (8)
  1. AMIKACIN SULFATE INJ [Suspect]
     Indication: MYCOBACTERIUM AVIUM COMPLEX INFECTION
     Dosage: DOSE: MONDAY, WEDNESDAY AND FRIDAY. LOT#630076 EXP 31-OCT-2006 AND LOT#63077 EXP 31-JAN-2007.
     Route: 042
     Dates: start: 20050408, end: 20050520
  2. CENTRUM [Concomitant]
  3. CITROCIL [Concomitant]
  4. NADOLOL [Concomitant]
  5. ALLEGRA [Concomitant]
  6. PAXIL [Concomitant]
  7. ZITHROMAX [Concomitant]
  8. MICROGESTIN FE [Concomitant]

REACTIONS (1)
  - ALOPECIA [None]
